FAERS Safety Report 14861383 (Version 2)
Quarter: 2018Q2

REPORT INFORMATION
  Report Type: Spontaneous
  Country: US (occurrence: US)
  Receive Date: 20180508
  Receipt Date: 20180511
  Transmission Date: 20180711
  Serious: Yes (Hospitalization, Other)
  Sender: FDA-Public Use
  Company Number: US-BAYER-2018-085386

PATIENT
  Age: 65 Year
  Sex: Male

DRUGS (1)
  1. LORATADINE + PSEUDOEPHEDRINE SULFATE [Suspect]
     Active Substance: LORATADINE\PSEUDOEPHEDRINE SULFATE
     Indication: HYPERSENSITIVITY
     Dosage: UNK

REACTIONS (5)
  - Labelled drug-disease interaction medication error [None]
  - Hypertensive emergency [Recovered/Resolved]
  - Contraindicated product administered [None]
  - Obstructive nephropathy [Recovered/Resolved]
  - Posterior reversible encephalopathy syndrome [Recovering/Resolving]
